FAERS Safety Report 4688729-1 (Version None)
Quarter: 2005Q2

REPORT INFORMATION
  Report Type: 
  Country: None (occurrence: None)
  Receive Date: 20050608
  Receipt Date: 20050407
  Transmission Date: 20051028
  Serious: No
  Sender: FDA-Public Use
  Company Number: 2004-BP-11655BP

PATIENT
  Age: 79 Year
  Sex: Male

DRUGS (9)
  1. SPIRIVA [Suspect]
     Indication: ASBESTOSIS
     Dosage: 18 MCG (18 MCG), IH
     Route: 055
  2. SPIRIVA [Suspect]
     Indication: ASBESTOSIS
     Dosage: 18 MCG (18 MCG), IH
     Route: 055
  3. PAXIL [Concomitant]
  4. FLOVENT [Concomitant]
  5. LEVOXYL [Concomitant]
  6. VITAMIN C (ASCORBIC ACID) [Concomitant]
  7. MULTIVITAMIN [Concomitant]
  8. ATENOLOL [Concomitant]
  9. RHINOCORT [Concomitant]

REACTIONS (2)
  - HEADACHE [None]
  - SINUS HEADACHE [None]
